FAERS Safety Report 6747018-1 (Version None)
Quarter: 2010Q2

REPORT INFORMATION
  Report Type: 
  Country: None (occurrence: None)
  Receive Date: 20100528
  Receipt Date: 20100518
  Transmission Date: 20101027
  Serious: Yes (Other)
  Sender: FDA-Public Use
  Company Number: US-ROCHE-705217

PATIENT

DRUGS (2)
  1. BONIVA [Suspect]
     Indication: DRUG USE FOR UNKNOWN INDICATION
     Route: 042
  2. CALCIUM CARBONATE [Concomitant]

REACTIONS (2)
  - BONE DENSITY DECREASED [None]
  - COMPRESSION FRACTURE [None]
